FAERS Safety Report 13131729 (Version 1)
Quarter: 2017Q1

REPORT INFORMATION
  Report Type: Spontaneous
  Country: US (occurrence: US)
  Receive Date: 20170119
  Receipt Date: 20170119
  Transmission Date: 20170428
  Serious: No
  Sender: FDA-Public Use
  Company Number: US-MISSION PHARMACAL COMPANY-1062175

PATIENT
  Age: 37 Year
  Sex: Male

DRUGS (2)
  1. THIOLA [Suspect]
     Active Substance: TIOPRONIN
     Indication: CYSTINURIA
     Route: 065
     Dates: start: 20161217
  2. ALOE VERA GEL [Concomitant]
     Active Substance: ALOE VERA LEAF
     Route: 061

REACTIONS (1)
  - Rash generalised [Recovering/Resolving]
